FAERS Safety Report 20447990 (Version 6)
Quarter: 2022Q4

REPORT INFORMATION
  Report Type: Report from Study
  Country: US (occurrence: US)
  Receive Date: 20220209
  Receipt Date: 20221217
  Transmission Date: 20230113
  Serious: Yes (Other)
  Sender: FDA-Public Use
  Company Number: US-NOVARTISTESTPH-NVSC2022US027352

PATIENT
  Sex: Female

DRUGS (1)
  1. ILARIS [Suspect]
     Active Substance: CANAKINUMAB
     Indication: Product used for unknown indication
     Dosage: 300 MG/KG, QMO
     Route: 058

REACTIONS (4)
  - Deafness [Unknown]
  - Blindness [Unknown]
  - Malaise [Unknown]
  - Product dose omission issue [Unknown]
